FAERS Safety Report 8489542-X (Version None)
Quarter: 2012Q3

REPORT INFORMATION
  Report Type: 
  Country: None (occurrence: None)
  Receive Date: 20120705
  Receipt Date: 20120626
  Transmission Date: 20120928
  Serious: Yes (Other)
  Sender: FDA-Public Use
  Company Number: US-VERTEX PHARMACEUTICALS INC.-AE-2012-009601

PATIENT
  Sex: Male
  Weight: 89.438 kg

DRUGS (4)
  1. HUMALOG [Concomitant]
  2. INCIVEK [Suspect]
     Indication: HEPATITIS C
     Route: 048
  3. RIBAPAK PAK [Concomitant]
     Indication: HEPATITIS C
  4. PEGASYS [Concomitant]
     Indication: HEPATITIS C

REACTIONS (7)
  - COUGH [None]
  - RASH [None]
  - PAIN [None]
  - PYREXIA [None]
  - FATIGUE [None]
  - VOMITING [None]
  - SYNCOPE [None]
